FAERS Safety Report 7503839-9 (Version None)
Quarter: 2011Q2

REPORT INFORMATION
  Report Type: 
  Country: None (occurrence: None)
  Receive Date: 20110525
  Receipt Date: 20110519
  Transmission Date: 20111010
  Serious: Yes (Hospitalization)
  Sender: FDA-Public Use
  Company Number: FR-MERCK-1105FRA00079

PATIENT
  Sex: Female

DRUGS (2)
  1. FOSAMAX PLUS D [Suspect]
     Indication: OSTEOPOROSIS
     Route: 065
     Dates: start: 20080101, end: 20110401
  2. FOSAMAX PLUS D [Suspect]
     Route: 048
     Dates: start: 20080101, end: 20110401

REACTIONS (3)
  - CALLUS FORMATION DELAYED [None]
  - HUMERUS FRACTURE [None]
  - ROAD TRAFFIC ACCIDENT [None]
